FAERS Safety Report 9318614 (Version 1)
Quarter: 2013Q2

REPORT INFORMATION
  Report Type: Spontaneous
  Country: ZA (occurrence: ZA)
  Receive Date: 20130530
  Receipt Date: 20130530
  Transmission Date: 20140414
  Serious: Yes (Death, Other)
  Sender: FDA-Public Use
  Company Number: ZA-ELI_LILLY_AND_COMPANY-ZA201305007217

PATIENT
  Age: 8 Year
  Sex: Male

DRUGS (3)
  1. HUMATROPE [Suspect]
     Indication: GROWTH HORMONE DEFICIENCY
     Dosage: 0.6MG/DAY
     Dates: start: 2005, end: 20130517
  2. COVOCORT [Concomitant]
     Dosage: 10MG, UNK
  3. THYROXINE [Concomitant]
     Dosage: 0.05MG X 1.5 TAB/DAY

REACTIONS (5)
  - Death [Fatal]
  - Convulsion [Unknown]
  - Headache [Unknown]
  - Pyrexia [Unknown]
  - Chills [Unknown]
